FAERS Safety Report 11713595 (Version 1)
Quarter: 2015Q4

REPORT INFORMATION
  Report Type: Spontaneous
  Country: US (occurrence: None)
  Receive Date: 20151106
  Receipt Date: 20151106
  Transmission Date: 20160304
  Serious: No
  Sender: FDA-Public Use
  Company Number: None

PATIENT
  Age: 65 Year
  Sex: Male

DRUGS (1)
  1. CREST TARTAR PROTECTION [Suspect]
     Active Substance: SODIUM FLUORIDE
     Indication: DENTAL CARE
     Route: 048
     Dates: start: 201510

REACTIONS (2)
  - Product taste abnormal [None]
  - Stomatitis [None]

NARRATIVE: CASE EVENT DATE: 201510
